FAERS Safety Report 5560551-3 (Version None)
Quarter: 2007Q4

REPORT INFORMATION
  Report Type: 
  Country: None (occurrence: None)
  Receive Date: 20071215
  Receipt Date: 20071107
  Transmission Date: 20080405
  Serious: No
  Sender: FDA-Public Use
  Company Number: US-ABBOTT-07P-163-0424498-00

PATIENT
  Sex: Female
  Weight: 67.192 kg

DRUGS (2)
  1. HUMIRA [Suspect]
     Indication: RHEUMATOID ARTHRITIS
     Route: 058
     Dates: start: 20031201, end: 20070801
  2. HUMIRA [Suspect]
     Route: 058
     Dates: start: 20071001

REACTIONS (2)
  - ENDODONTIC PROCEDURE [None]
  - UPPER RESPIRATORY TRACT INFECTION [None]
